FAERS Safety Report 8563461-2 (Version None)
Quarter: 2012Q3

REPORT INFORMATION
  Report Type: 
  Country: None (occurrence: None)
  Receive Date: 20120802
  Receipt Date: 20120724
  Transmission Date: 20120928
  Serious: Yes (Other)
  Sender: FDA-Public Use
  Company Number: GB-TEVA-350265ISR

PATIENT
  Age: 66 Year
  Sex: Male
  Weight: 95.255 kg

DRUGS (9)
  1. SYMBICORT [Concomitant]
     Dates: start: 20120412
  2. ROSUVASTATIN [Concomitant]
     Dates: start: 20120712
  3. OMEPRAZOLE [Concomitant]
     Dates: start: 20120521, end: 20120618
  4. DILTIAZEM HCL [Concomitant]
     Dates: start: 20120613, end: 20120711
  5. ATORVASTATIN [Suspect]
     Dates: start: 20120316
  6. CORACTEN [Concomitant]
     Dates: start: 20120514
  7. FLUOXETINE HCL [Concomitant]
     Dates: start: 20120514, end: 20120613
  8. CIALIS [Concomitant]
     Dates: start: 20120412
  9. LOSARTAN POTASSIUM [Concomitant]
     Dates: start: 20120620

REACTIONS (1)
  - SUICIDAL IDEATION [None]
